FAERS Safety Report 15246945 (Version 1)
Quarter: 2018Q3

REPORT INFORMATION
  Report Type: Spontaneous
  Country: SE (occurrence: SE)
  Receive Date: 20180806
  Receipt Date: 20180806
  Transmission Date: 20181010
  Serious: Yes (Hospitalization, Other)
  Sender: FDA-Public Use
  Company Number: SE-ALEMBIC PHARMACUETICALS LIMITED-2018SCAL000581

PATIENT

DRUGS (2)
  1. METOPROLOL TARTRATE. [Suspect]
     Active Substance: METOPROLOL TARTRATE
     Indication: PRODUCT USED FOR UNKNOWN INDICATION
     Dosage: 10 GRAM
     Route: 065
  2. AMLODIPINE [Suspect]
     Active Substance: AMLODIPINE BESYLATE
     Indication: PRODUCT USED FOR UNKNOWN INDICATION
     Dosage: 1 GRAM
     Route: 065

REACTIONS (8)
  - Overdose [Unknown]
  - Poisoning [Unknown]
  - Heart rate decreased [Recovered/Resolved]
  - Disorientation [Recovered/Resolved]
  - Drug level increased [Unknown]
  - Shock [Recovered/Resolved]
  - Blood pressure systolic decreased [Recovered/Resolved]
  - Urine output decreased [Recovered/Resolved]
